FAERS Safety Report 4397403-0 (Version None)
Quarter: 2004Q2

REPORT INFORMATION
  Report Type: 
  Country: None (occurrence: None)
  Receive Date: 20040621
  Receipt Date: 20040211
  Transmission Date: 20050107
  Serious: Yes (Other)
  Sender: FDA-Public Use
  Company Number: USA-2004-0013066

PATIENT
  Age: 30 Year
  Sex: Male

DRUGS (3)
  1. OXYCONTIN [Suspect]
     Indication: PAIN
     Dosage: 20 MG, Q12H
  2. LIDOCAINE [Concomitant]
  3. FLEXERIL [Concomitant]

REACTIONS (1)
  - CONVULSION [None]
